FAERS Safety Report 14213850 (Version 3)
Quarter: 2019Q2

REPORT INFORMATION
  Report Type: Report from Study
  Country: NL (occurrence: NL)
  Receive Date: 20171122
  Receipt Date: 20190403
  Transmission Date: 20190711
  Serious: Yes (Life-Threatening, Other)
  Sender: FDA-Public Use
  Company Number: NL-BRISTOL-MYERS SQUIBB COMPANY-BMS-2017-079680

PATIENT
  Age: 39 Year
  Sex: Female

DRUGS (5)
  1. BLINDED ABATACEPT [Suspect]
     Active Substance: ABATACEPT
     Indication: SJOGREN^S SYNDROME
     Dosage: 125 MG, UNK
     Route: 058
     Dates: start: 20161201, end: 20170518
  2. EUTHYROX [Concomitant]
     Active Substance: LEVOTHYROXINE SODIUM
     Indication: PRODUCT USED FOR UNKNOWN INDICATION
     Dosage: UNK
     Route: 065
     Dates: start: 2007
  3. BLINDED PLACEBO [Suspect]
     Active Substance: INVESTIGATIONAL PRODUCT
     Indication: SJOGREN^S SYNDROME
     Dosage: 125 MG, UNK
     Route: 058
     Dates: start: 20161201, end: 20170518
  4. ABATACEPT [Suspect]
     Active Substance: ABATACEPT
     Indication: SJOGREN^S SYNDROME
     Dosage: 125 MG, QWK
     Route: 058
     Dates: start: 20170518, end: 20170822
  5. VITAMIN B12 [Concomitant]
     Active Substance: CYANOCOBALAMIN
     Indication: PRODUCT USED FOR UNKNOWN INDICATION
     Dosage: UNK
     Route: 065
     Dates: start: 2005

REACTIONS (1)
  - Adenocarcinoma of the cervix [Not Recovered/Not Resolved]

NARRATIVE: CASE EVENT DATE: 20170720
